FAERS Safety Report 6342831-7 (Version None)
Quarter: 2009Q3

REPORT INFORMATION
  Report Type: 
  Country: None (occurrence: None)
  Receive Date: 20090821
  Receipt Date: 20090609
  Transmission Date: 20100115
  Serious: No
  Sender: FDA-Public Use
  Company Number: 8047645

PATIENT
  Age: 37 Year
  Sex: Female
  Weight: 61.2 kg

DRUGS (8)
  1. CIMZIA [Suspect]
     Indication: CROHN'S DISEASE
     Dosage: 400 MG SC
     Route: 058
     Dates: start: 20090409
  2. ZOLOFT [Concomitant]
  3. XANAX [Concomitant]
  4. LAMICTAL [Concomitant]
  5. TOPAMAX [Concomitant]
  6. ESTROGEN [Concomitant]
  7. LORTAB [Concomitant]
  8. POTASSIUM CHLORIDE [Concomitant]

REACTIONS (4)
  - ABDOMINAL PAIN [None]
  - FURUNCLE [None]
  - RASH [None]
  - VISION BLURRED [None]
